FAERS Safety Report 24213177 (Version 1)
Quarter: 2024Q3

REPORT INFORMATION
  Report Type: Other
  Country: IN (occurrence: AT)
  Receive Date: 20240815
  Receipt Date: 20240815
  Transmission Date: 20241016
  Serious: Yes (Disabling, Other)
  Sender: BRECKENRIDGE
  Company Number: AT-Breckenridge Pharmaceutical, Inc.-2160498

PATIENT
  Age: 83 Year
  Sex: Female

DRUGS (7)
  1. DULOXETINE [Suspect]
     Active Substance: DULOXETINE
     Indication: Depression
     Route: 048
  2. TELMISARTAN [Concomitant]
     Active Substance: TELMISARTAN
  3. ROSUVASTATIN [Concomitant]
     Active Substance: ROSUVASTATIN\ROSUVASTATIN CALCIUM
  4. DENOSUMAB [Concomitant]
     Active Substance: DENOSUMAB
  5. DAPAGLIFLOZIN [Concomitant]
     Active Substance: DAPAGLIFLOZIN
  6. LEVOTHYROXINE [Concomitant]
     Active Substance: LEVOTHYROXINE\LEVOTHYROXINE SODIUM
  7. APIXABAN [Concomitant]
     Active Substance: APIXABAN

REACTIONS (3)
  - Bruxism [Recovered/Resolved]
  - Tardive dyskinesia [Recovered/Resolved]
  - Dysphagia [Recovered/Resolved]
